FAERS Safety Report 5156290-3 (Version None)
Quarter: 2006Q4

REPORT INFORMATION
  Report Type: 
  Country: None (occurrence: None)
  Receive Date: 20061122
  Receipt Date: 20061106
  Transmission Date: 20070319
  Serious: Yes (Other)
  Sender: FDA-Public Use
  Company Number: US-GLAXOSMITHKLINE-A0626549A

PATIENT
  Age: 54 Year
  Weight: 59.1 kg

DRUGS (8)
  1. FLONASE [Suspect]
     Indication: SINUS DISORDER
     Dosage: 100MCG PER DAY
     Route: 045
     Dates: end: 20061023
  2. LEVOTHYROXINE SODIUM [Concomitant]
     Indication: HYPOTHYROIDISM
     Dosage: 50MCG PER DAY
     Route: 048
  3. XANAX [Concomitant]
     Indication: ANXIETY
     Dosage: .25MG PER DAY
     Route: 048
  4. CLARITIN [Concomitant]
     Indication: MULTIPLE ALLERGIES
     Dosage: 5MG PER DAY
     Route: 048
  5. TYLENOL [Concomitant]
     Indication: HEADACHE
     Route: 048
  6. BENADRYL [Concomitant]
     Indication: SINUS DISORDER
  7. ADVIL [Concomitant]
     Indication: SINUS DISORDER
     Route: 048
  8. EXCEDRIN SINUS [Concomitant]
     Indication: SINUS DISORDER

REACTIONS (3)
  - CUSHINGOID [None]
  - LEUKOPENIA [None]
  - LYMPHOPENIA [None]
